FAERS Safety Report 12045551 (Version 1)
Quarter: 2016Q1

REPORT INFORMATION
  Report Type: Spontaneous
  Country: US (occurrence: US)
  Receive Date: 20160208
  Receipt Date: 20160208
  Transmission Date: 20160526
  Serious: No
  Sender: FDA-Public Use
  Company Number: US-AEGERION PHARMACEUTICAL INC.-AEGR002292

PATIENT
  Sex: Female
  Weight: 56.69 kg

DRUGS (2)
  1. MYALEPT [Suspect]
     Active Substance: METRELEPTIN
     Indication: LIPODYSTROPHY ACQUIRED
     Dosage: 5 MG, UNK
     Route: 058
     Dates: start: 201504, end: 20150721
  2. MYALEPT [Suspect]
     Active Substance: METRELEPTIN
     Dosage: 10 MG, QD
     Route: 058
     Dates: start: 2015

REACTIONS (1)
  - Injection site pain [Not Recovered/Not Resolved]

NARRATIVE: CASE EVENT DATE: 2015
